FAERS Safety Report 10219081 (Version 2)
Quarter: 2014Q2

REPORT INFORMATION
  Report Type: Report from Study
  Country: CA (occurrence: CA)
  Receive Date: 20140605
  Receipt Date: 20140619
  Transmission Date: 20141212
  Serious: Yes (Disabling)
  Sender: FDA-Public Use
  Company Number: CA-ABBVIE-14P-028-1242143-00

PATIENT
  Age: 50 Year
  Sex: Male
  Weight: 56.75 kg

DRUGS (9)
  1. KALETRA 200/50 [Suspect]
     Indication: ANTIRETROVIRAL THERAPY
     Dosage: 2 TABS?200MG/50MG
     Route: 048
     Dates: start: 20090520
  2. ANTIDEPRESSANTS [Suspect]
     Indication: PRODUCT USED FOR UNKNOWN INDICATION
     Dates: start: 201405, end: 201405
  3. AMITRIPTYLENE [Concomitant]
     Indication: PRODUCT USED FOR UNKNOWN INDICATION
     Dosage: ONCE BEFORE SLEEP
     Route: 048
  4. METOPROLOL [Concomitant]
     Indication: PRODUCT USED FOR UNKNOWN INDICATION
     Route: 048
  5. LORAZEPAM [Concomitant]
     Indication: PRODUCT USED FOR UNKNOWN INDICATION
     Dosage: ONCE BEFORE SLEEP
     Route: 048
  6. MIRTAZAPINE [Concomitant]
     Indication: PRODUCT USED FOR UNKNOWN INDICATION
     Dosage: ONCE BEFORE SLEEP
     Route: 048
  7. INVIRASE [Concomitant]
     Indication: HIV INFECTION
     Route: 048
  8. LAMIVUDINE [Concomitant]
     Indication: HIV INFECTION
  9. VIREAD [Concomitant]
     Indication: HIV INFECTION

REACTIONS (5)
  - Spinal cord disorder [Unknown]
  - Mobility decreased [Unknown]
  - Pain in extremity [Not Recovered/Not Resolved]
  - Hypersensitivity [Unknown]
  - Back pain [Not Recovered/Not Resolved]
